FAERS Safety Report 8627517 (Version 4)
Quarter: 2012Q4

REPORT INFORMATION
  Report Type: 
  Country: US (occurrence: US)
  Receive Date: 20120621
  Receipt Date: 20120914
  Transmission Date: 20130627
  Serious: No
  Sender: FDA-Public Use
  Company Number: US-PFIZER INC-K200801291

PATIENT
  Age: 43 Year
  Sex: Female
  Weight: 46.7 kg

DRUGS (2)
  1. LEVOXYL [Suspect]
     Indication: AUTOIMMUNE THYROIDITIS
     Dosage: 75 ug, 1x/day
     Route: 048
     Dates: start: 1986
  2. LEVOXYL [Suspect]
     Dosage: UNK

REACTIONS (11)
  - Drug ineffective [Unknown]
  - Poor quality drug administered [Unknown]
  - Product quality issue [Unknown]
  - Malaise [Unknown]
  - Abdominal pain upper [Not Recovered/Not Resolved]
  - Memory impairment [Not Recovered/Not Resolved]
  - Panic reaction [Recovered/Resolved]
  - Hyperhidrosis [Not Recovered/Not Resolved]
  - Feeling abnormal [Not Recovered/Not Resolved]
  - Investigation abnormal [Unknown]
  - Micturition disorder [Unknown]
